FAERS Safety Report 6580324-2 (Version None)
Quarter: 2010Q1

REPORT INFORMATION
  Report Type: 
  Country: None (occurrence: None)
  Receive Date: 20100212
  Receipt Date: 20100111
  Transmission Date: 20100710
  Serious: No
  Sender: FDA-Public Use
  Company Number: US-ALLERGAN-1000338US

PATIENT
  Age: 79 Year
  Sex: Female

DRUGS (1)
  1. COMBIGAN [Suspect]
     Indication: GLAUCOMA
     Dosage: 1 GTT, BID
     Route: 047
     Dates: start: 20100106, end: 20100106

REACTIONS (8)
  - BLOOD PRESSURE INCREASED [None]
  - DYSPNOEA [None]
  - ERYTHEMA OF EYELID [None]
  - EYE IRRITATION [None]
  - EYE PRURITUS [None]
  - EYELID EXFOLIATION [None]
  - EYELID OEDEMA [None]
  - OCULAR HYPERAEMIA [None]
